FAERS Safety Report 6124294-X (Version None)
Quarter: 2009Q1

REPORT INFORMATION
  Report Type: 
  Country: None (occurrence: None)
  Receive Date: 20090317
  Receipt Date: 20090317
  Transmission Date: 20090719
  Serious: Yes (Life-Threatening, Hospitalization)
  Sender: FDA-Public Use
  Company Number: None

PATIENT
  Age: 59 Year
  Sex: Female
  Weight: 127 kg

DRUGS (4)
  1. CUBICIN [Suspect]
     Indication: ENTEROCOCCAL BACTERAEMIA
     Dosage: 800MG (6.3 MG/KG) MON/WED POST-HD IV (041) 1000MG (7.9 MG/KG) FRI POST-HD IV (041)
     Route: 042
     Dates: start: 20090216, end: 20090220
  2. CIPROFLOXACIN [Concomitant]
  3. METRONIDAZOLE [Concomitant]
  4. RANITIDINE [Concomitant]

REACTIONS (3)
  - ASTHENIA [None]
  - IMMOBILE [None]
  - SENSATION OF HEAVINESS [None]
